FAERS Safety Report 8863038 (Version 1)
Quarter: 2012Q4

REPORT INFORMATION
  Report Type: 
  Country: US (occurrence: US)
  Receive Date: 20121026
  Receipt Date: 20121026
  Transmission Date: 20130627
  Serious: Yes (Hospitalization)
  Sender: FDA-Public Use
  Company Number: US-ELI_LILLY_AND_COMPANY-US201210005382

PATIENT
  Age: 71 Year
  Sex: Female

DRUGS (3)
  1. CYMBALTA [Suspect]
     Indication: DEPRESSION
     Dosage: 20 mg, bid
  2. LISINOPRIL [Concomitant]
  3. XANAX [Concomitant]

REACTIONS (1)
  - Oesophageal stenosis [Unknown]
